FAERS Safety Report 12329384 (Version 1)
Quarter: 2016Q2

REPORT INFORMATION
  Report Type: Spontaneous
  Country: US (occurrence: US)
  Receive Date: 20160503
  Receipt Date: 20160503
  Transmission Date: 20160815
  Serious: No
  Sender: FDA-Public Use
  Company Number: US-ELI_LILLY_AND_COMPANY-US201604002338

PATIENT
  Age: 80 Year
  Sex: Female

DRUGS (4)
  1. CYMBALTA [Suspect]
     Active Substance: DULOXETINE HYDROCHLORIDE
     Indication: ANXIETY
     Dosage: 20 MG, QD
     Route: 065
     Dates: start: 20160427
  2. EFFEXOR [Concomitant]
     Active Substance: VENLAFAXINE HYDROCHLORIDE
     Indication: BACK PAIN
     Dosage: 150 MG, UNKNOWN
     Route: 065
  3. XANAX [Concomitant]
     Active Substance: ALPRAZOLAM
     Indication: BACK PAIN
     Dosage: 1 MG, BID
     Route: 065
  4. CYMBALTA [Suspect]
     Active Substance: DULOXETINE HYDROCHLORIDE
     Indication: DEPRESSION

REACTIONS (8)
  - Dry mouth [Recovering/Resolving]
  - Abnormal dreams [Recovering/Resolving]
  - Fatigue [Unknown]
  - Sluggishness [Recovering/Resolving]
  - Headache [Recovering/Resolving]
  - Palpitations [Unknown]
  - Insomnia [Unknown]
  - Back pain [Unknown]
